FAERS Safety Report 4354038-3 (Version None)
Quarter: 2004Q2

REPORT INFORMATION
  Report Type: 
  Country: None (occurrence: None)
  Receive Date: 20040503
  Receipt Date: 20040322
  Transmission Date: 20050107
  Serious: Yes (Death, Life-Threatening, Hospitalization, Disabling)
  Sender: FDA-Public Use
  Company Number: 04P-055-0246190-00

PATIENT
  Age: 75 Year
  Sex: Male

DRUGS (18)
  1. FENOFIBRATE [Suspect]
     Indication: DIABETES MELLITUS
     Dosage: 1 IN 1 D, PER ORAL
     Route: 048
     Dates: start: 20000809, end: 20030916
  2. FENOFIBRATE [Suspect]
     Indication: DYSLIPIDAEMIA
     Dosage: 1 IN 1 D, PER ORAL
     Route: 048
     Dates: start: 20000809, end: 20030916
  3. INSULIN HUMAN [Concomitant]
  4. DIPYRIDAMOLE [Concomitant]
  5. CARBAMAZEPINE [Concomitant]
  6. DIPYRAZINE [Concomitant]
  7. BLOCANOL EYE DROPS [Concomitant]
  8. LATANOPROST [Concomitant]
  9. GLYCERYL TRINITRATE [Concomitant]
  10. INSULIN ISOPHANE, HUMAN BIOSYNTHETIC [Concomitant]
  11. LERCANIDIPINE HYDROCHLORIDE [Concomitant]
  12. NAPROXEN [Concomitant]
  13. PREDNISOLONE ACETATE [Concomitant]
  14. METFORMIN HYDROCHLORIDE [Concomitant]
  15. CANDESARTAN CILEXETIL [Concomitant]
  16. BISOPROLOL [Concomitant]
  17. ISOSORBIDE MONONITRATE [Concomitant]
  18. SIMVASTATIN [Concomitant]

REACTIONS (7)
  - ATRIAL FIBRILLATION [None]
  - CARDIAC FUNCTION DISTURBANCE POSTOPERATIVE [None]
  - CARDIAC TAMPONADE [None]
  - CORONARY ARTERY DISEASE [None]
  - HAEMODIALYSIS [None]
  - PERICARDIAL HAEMORRHAGE [None]
  - RENAL FAILURE [None]
